FAERS Safety Report 4869690-3 (Version None)
Quarter: 2005Q4

REPORT INFORMATION
  Report Type: 
  Country: None (occurrence: None)
  Receive Date: 20051223
  Receipt Date: 20051219
  Transmission Date: 20060501
  Serious: Yes (Life-Threatening, Hospitalization)
  Sender: FDA-Public Use
  Company Number: FRWYE974513SEP05

PATIENT
  Age: 55 Year
  Sex: Female

DRUGS (6)
  1. EFFEXOR XR [Suspect]
     Indication: DEPRESSION
     Dosage: 112.5 MG DAILY
     Route: 048
     Dates: start: 20050119, end: 20050721
  2. EFFEXOR XR [Suspect]
     Indication: GENERALISED ANXIETY DISORDER
     Dosage: 112.5 MG DAILY
     Route: 048
     Dates: start: 20050119, end: 20050721
  3. PROPRANOLOL HYDROCHLORIDE [Concomitant]
  4. LEXOMIL (BROMAZEPAM) [Concomitant]
  5. ADVIL [Concomitant]
  6. THIOCOLCHICOSIDE (THIOCOLCHICOSIDE) [Concomitant]

REACTIONS (16)
  - ALANINE AMINOTRANSFERASE INCREASED [None]
  - ASCITES [None]
  - ASPARTATE AMINOTRANSFERASE INCREASED [None]
  - ASTHENIA [None]
  - BUNDLE BRANCH BLOCK LEFT [None]
  - CONGESTIVE CARDIOMYOPATHY [None]
  - DYSPNOEA [None]
  - FIBRIN D DIMER INCREASED [None]
  - HYPOTENSION [None]
  - MITRAL VALVE INCOMPETENCE [None]
  - PCO2 DECREASED [None]
  - PLEURAL EFFUSION [None]
  - PROTHROMBIN LEVEL DECREASED [None]
  - RALES [None]
  - TACHYCARDIA [None]
  - VERTIGO [None]
